FAERS Safety Report 6203749-3 (Version None)
Quarter: 2009Q2

REPORT INFORMATION
  Report Type: 
  Country: None (occurrence: None)
  Receive Date: 20090521
  Receipt Date: 20090512
  Transmission Date: 20091009
  Serious: Yes (Death)
  Sender: FDA-Public Use
  Company Number: DSA_33637_2009

PATIENT
  Sex: Male

DRUGS (5)
  1. XENAZINE [Suspect]
     Indication: HUNTINGTON'S CHOREA
     Dosage: 25 MG TID
     Dates: start: 20090303, end: 20090401
  2. HALDOL [Concomitant]
  3. NAMENDA [Concomitant]
  4. LEXAPRO [Concomitant]
  5. PHENERGAN [Concomitant]

REACTIONS (7)
  - BLOOD PRESSURE DECREASED [None]
  - DEMENTIA ALZHEIMER'S TYPE [None]
  - DISEASE PROGRESSION [None]
  - NO THERAPEUTIC RESPONSE [None]
  - PALLOR [None]
  - SYNCOPE [None]
  - WEIGHT DECREASED [None]
